FAERS Safety Report 10790428 (Version 2)
Quarter: 2015Q1

REPORT INFORMATION
  Report Type: Spontaneous
  Country: NL (occurrence: NL)
  Receive Date: 20150212
  Receipt Date: 20150331
  Transmission Date: 20150721
  Serious: Yes (Other)
  Sender: FDA-Public Use
  Company Number: CHPA2015NL001738

PATIENT
  Age: 42 Year
  Sex: Female

DRUGS (1)
  1. NICOTINELL [Suspect]
     Active Substance: NICOTINE
     Indication: SMOKING CESSATION THERAPY
     Dosage: 8 X 2 MG DAILY
     Route: 048
     Dates: start: 2011, end: 201502

REACTIONS (2)
  - Incorrect drug administration duration [Unknown]
  - Drug dependence [Recovered/Resolved]

NARRATIVE: CASE EVENT DATE: 2011
